FAERS Safety Report 7080526-5 (Version None)
Quarter: 2010Q4

REPORT INFORMATION
  Report Type: 
  Country: None (occurrence: None)
  Receive Date: 20101025
  Receipt Date: 20101008
  Transmission Date: 20110411
  Serious: Yes (Life-Threatening, Hospitalization, Other)
  Sender: FDA-Public Use
  Company Number: ACO_01665_2010

PATIENT
  Age: 50 Year
  Sex: Female
  Weight: 65.7716 kg

DRUGS (7)
  1. AMPYRA [Suspect]
     Indication: MULTIPLE SCLEROSIS
     Dosage: (10 MG BID ORAL)
     Route: 048
     Dates: start: 20100401, end: 20100420
  2. K-DUR [Concomitant]
  3. FOLIC ACID [Concomitant]
  4. METAMUCIL /014030601/ [Concomitant]
  5. LISINOPRIL [Concomitant]
  6. PRILOSEC [Concomitant]
  7. TRANSDERM PATCH [Concomitant]

REACTIONS (8)
  - COGNITIVE DISORDER [None]
  - CONVULSION [None]
  - FAECALOMA [None]
  - INSOMNIA [None]
  - LOSS OF CONSCIOUSNESS [None]
  - SEPSIS [None]
  - SHOCK [None]
  - THINKING ABNORMAL [None]
